FAERS Safety Report 25369174 (Version 1)
Quarter: 2025Q2

REPORT INFORMATION
  Report Type: Spontaneous
  Country: CN (occurrence: CN)
  Receive Date: 20250528
  Receipt Date: 20250528
  Transmission Date: 20250717
  Serious: Yes (Hospitalization)
  Sender: ROCHE
  Company Number: CN-BoehringerIngelheim-2025-BI-072865

PATIENT
  Age: 66 Year
  Sex: Female
  Weight: 70.0 kg

DRUGS (4)
  1. ALTEPLASE [Suspect]
     Active Substance: ALTEPLASE
     Indication: Cerebral infarction
     Route: 042
     Dates: start: 20250515, end: 20250515
  2. TIROFIBAN HYDROCHLORIDE [Concomitant]
     Active Substance: TIROFIBAN HYDROCHLORIDE
     Indication: Cerebral infarction
     Route: 042
     Dates: start: 20250515, end: 20250517
  3. TIROFIBAN HYDROCHLORIDE [Concomitant]
     Active Substance: TIROFIBAN HYDROCHLORIDE
     Indication: Antiplatelet therapy
  4. HEPARIN SODIUM [Concomitant]
     Active Substance: HEPARIN SODIUM
     Indication: Anticoagulant therapy
     Route: 042
     Dates: start: 20250515, end: 20250515

REACTIONS (5)
  - Stress ulcer haemorrhage [Recovering/Resolving]
  - Nausea [Recovering/Resolving]
  - Retching [Recovering/Resolving]
  - Haematemesis [Recovering/Resolving]
  - Faecal occult blood positive [Recovering/Resolving]

NARRATIVE: CASE EVENT DATE: 20250515
